FAERS Safety Report 7278406-5 (Version None)
Quarter: 2011Q1

REPORT INFORMATION
  Report Type: 
  Country: None (occurrence: None)
  Receive Date: 20110207
  Receipt Date: 20110124
  Transmission Date: 20110831
  Serious: Yes (Hospitalization)
  Sender: FDA-Public Use
  Company Number: NL-GENZYME-CLOF-1001413

PATIENT
  Sex: Male
  Weight: 78 kg

DRUGS (11)
  1. VALACICLOVIR [Concomitant]
  2. EVOLTRA [Suspect]
     Indication: ACUTE LYMPHOCYTIC LEUKAEMIA
     Dosage: 62 MG, QDX5
     Route: 042
     Dates: start: 20101215, end: 20101219
  3. METHOTREXATE [Suspect]
     Indication: ACUTE LYMPHOCYTIC LEUKAEMIA
     Dosage: 15 MG, UNK
     Route: 037
     Dates: start: 20101223, end: 20110106
  4. VINCRISTINE [Suspect]
     Indication: ACUTE LYMPHOCYTIC LEUKAEMIA
     Dosage: 1 MG, UNK
     Route: 042
     Dates: start: 20101222, end: 20110106
  5. ADRIAMYCIN PFS [Suspect]
     Indication: ACUTE LYMPHOCYTIC LEUKAEMIA
     Dosage: 82 MG, UNK
     Route: 042
     Dates: start: 20101229, end: 20110106
  6. PREDNISOLONE [Suspect]
     Indication: ACUTE LYMPHOCYTIC LEUKAEMIA
     Dosage: 15 MG, UNK
     Dates: start: 20101222, end: 20110111
  7. MACROGOL [Concomitant]
     Indication: CONSTIPATION
     Dosage: 2 OTHER, NA
     Dates: start: 20101222
  8. COTRIM [Concomitant]
     Indication: PROPHYLAXIS
     Dosage: 480 MG, UNK
     Route: 048
     Dates: start: 20101214
  9. CYTARABINE [Suspect]
     Indication: ACUTE LYMPHOCYTIC LEUKAEMIA
     Dosage: 40 MG, UNK
     Route: 037
     Dates: start: 20101223, end: 20110106
  10. NADROPARIN [Concomitant]
     Indication: PROPHYLAXIS
     Dosage: 5700 OTHER, UNK
     Route: 058
     Dates: start: 20101211
  11. KLEAN PREP [Concomitant]
     Indication: CONSTIPATION
     Dosage: 4 OTHER, QD
     Route: 048
     Dates: start: 20101222

REACTIONS (1)
  - ANAL ABSCESS [None]
